FAERS Safety Report 6857046-3 (Version None)
Quarter: 2010Q3

REPORT INFORMATION
  Report Type: 
  Country: None (occurrence: None)
  Receive Date: 20100719
  Receipt Date: 20100712
  Transmission Date: 20110219
  Serious: Yes (Hospitalization)
  Sender: FDA-Public Use
  Company Number: A0870860A

PATIENT
  Age: 48 Year
  Sex: Female

DRUGS (1)
  1. AVANDIA [Suspect]
     Route: 048
     Dates: start: 19970101, end: 20090101

REACTIONS (2)
  - CEREBROVASCULAR ACCIDENT [None]
  - COMA [None]
